FAERS Safety Report 4843868-7 (Version None)
Quarter: 2005Q4

REPORT INFORMATION
  Report Type: 
  Country: None (occurrence: None)
  Receive Date: 20051130
  Receipt Date: 20051130
  Transmission Date: 20060501
  Serious: No
  Sender: FDA-Public Use
  Company Number: None

PATIENT
  Age: 89 Year
  Sex: Female
  Weight: 70 kg

DRUGS (1)
  1. HYDROCODONE 7.5 MG /APAP 500 MG [Suspect]
     Indication: PAIN
     Dosage: PO BID PRN
     Route: 048
     Dates: start: 20051101, end: 20051108

REACTIONS (1)
  - CONFUSIONAL STATE [None]
